FAERS Safety Report 10019999 (Version 2)
Quarter: 2014Q2

REPORT INFORMATION
  Report Type: Spontaneous
  Country: ES (occurrence: ES)
  Receive Date: 20140318
  Receipt Date: 20140404
  Transmission Date: 20141212
  Serious: Yes (Death, Hospitalization, Other)
  Sender: FDA-Public Use
  Company Number: ES-CELGENEUS-144-50794-14030775

PATIENT
  Sex: 0

DRUGS (6)
  1. VIDAZA [Suspect]
     Indication: REFRACTORY ANAEMIA WITH AN EXCESS OF BLASTS
     Dosage: 75 MILLIGRAM/SQ. METER
     Route: 065
     Dates: start: 20120913, end: 20121119
  2. OMEPRAZOLE [Concomitant]
     Indication: PRODUCT USED FOR UNKNOWN INDICATION
     Route: 065
  3. METFORMIN [Concomitant]
     Indication: TYPE 2 DIABETES MELLITUS
     Route: 065
  4. CLOPIDOGREL [Concomitant]
     Indication: PROPHYLAXIS
     Route: 065
  5. AMLODIPINE [Concomitant]
     Indication: HYPERTENSION
     Route: 065
  6. VALSARTAN [Concomitant]
     Indication: HYPERTENSION
     Route: 065

REACTIONS (4)
  - Abscess jaw [Fatal]
  - Acute myeloid leukaemia [Unknown]
  - Pneumonia [Unknown]
  - Pleural effusion [Unknown]
